FAERS Safety Report 11327427 (Version 4)
Quarter: 2015Q4

REPORT INFORMATION
  Report Type: Spontaneous
  Country: US (occurrence: US)
  Receive Date: 20150731
  Receipt Date: 20151026
  Transmission Date: 20160304
  Serious: Yes (Hospitalization)
  Sender: FDA-Public Use
  Company Number: US-PFIZER INC-2015253858

PATIENT
  Age: 63 Year
  Sex: Male

DRUGS (3)
  1. VICOPROFEN [Concomitant]
     Active Substance: HYDROCODONE BITARTRATE\IBUPROFEN
     Dosage: UNK UNK, 2X/DAY (AS NEEDED)
     Dates: start: 2005
  2. CLONAZEPAM. [Concomitant]
     Active Substance: CLONAZEPAM
     Dosage: 1 MG, 1X/DAY (SOMETIMES2.1 MG)
     Dates: start: 2006
  3. LYRICA [Suspect]
     Active Substance: PREGABALIN
     Indication: RHEUMATOID ARTHRITIS
     Dosage: UNK, 3X/DAY

REACTIONS (3)
  - Condition aggravated [Recovered/Resolved]
  - Insomnia [Recovered/Resolved]
  - Rheumatoid arthritis [Recovered/Resolved]
